FAERS Safety Report 21443381 (Version 1)
Quarter: 2022Q4

REPORT INFORMATION
  Report Type: Spontaneous
  Country: IT (occurrence: IT)
  Receive Date: 20221012
  Receipt Date: 20221012
  Transmission Date: 20230113
  Serious: Yes (Death, Life-Threatening, Other)
  Sender: FDA-Public Use
  Company Number: IT-Zentiva-2022-ZT-007975

PATIENT
  Sex: Male

DRUGS (3)
  1. MIRTAZAPINE [Suspect]
     Active Substance: MIRTAZAPINE
     Indication: Product used for unknown indication
     Dosage: 30 MILLIGRAM, ONCE A DAY
     Route: 048
  2. FLURAZEPAM [Suspect]
     Active Substance: FLURAZEPAM HYDROCHLORIDE
     Indication: Product used for unknown indication
     Dosage: UNK
     Route: 065
  3. METHADONE [Suspect]
     Active Substance: METHADONE HYDROCHLORIDE
     Indication: Product used for unknown indication
     Dosage: UNK
     Route: 065

REACTIONS (16)
  - Overdose [Fatal]
  - Brain oedema [Recovered/Resolved]
  - Pulmonary oedema [Recovered/Resolved]
  - Drug abuse [Recovered/Resolved]
  - Dyspnoea [Recovered/Resolved]
  - Delirium [Recovered/Resolved]
  - Depressed level of consciousness [Recovered/Resolved]
  - Grunting [Recovered/Resolved]
  - Unresponsive to stimuli [Recovered/Resolved]
  - Hypokinesia [Recovered/Resolved]
  - Loss of consciousness [Recovered/Resolved]
  - Malaise [Recovered/Resolved]
  - Regurgitation [Recovered/Resolved]
  - Vomiting [Recovered/Resolved]
  - Hiccups [Recovered/Resolved]
  - Snoring [Recovered/Resolved]
